FAERS Safety Report 9521655 (Version 1)
Quarter: 2013Q1

REPORT INFORMATION
  Report Type: Spontaneous
  Country: US (occurrence: None)
  Receive Date: 20130305
  Receipt Date: 20130305
  Transmission Date: 20140127
  Serious: Yes (Disabling, Other)
  Sender: FDA-Public Use
  Company Number: 163-21880-12030051

PATIENT
  Age: 77 Year
  Sex: Male
  Weight: 80.29 kg

DRUGS (20)
  1. REVLIMID [Suspect]
     Indication: PLASMA CELL MYELOMA
     Dosage: 25 MG, 1 IN 1 D, PO
     Route: 048
     Dates: start: 20110309, end: 20110420
  2. DEXAMETHASONE (DEXAMEHTASONE) (4 MILLIGRAM, TABLETS) [Concomitant]
  3. ACETAMINOPHEN (PARACETAMOL) (LIQUID)? [Concomitant]
  4. ADULT LOW DOSE ASPIRIN (ACETYLSALICYLIC AID) (ENTERIC-COATED TABLETS)? [Concomitant]
  5. ALBUTEROL SULFATE (SALBUTAMOL SULFATE) (AEROSOL FOR INHALATION)? [Concomitant]
  6. AVODART (DUTASTERIDE) (CAPSULES) [Concomitant]
  7. CALCIUM 500 + D (CALCIUM D3 ^STADA^) (TABLETS) [Concomitant]
  8. ENOXAPARIN SODIUM (HEPARIN-FRACTION, SODIUM SALT) (UNKNOWN) [Concomitant]
  9. LIPITOR (ATORVASTATIN) (TABLETS) [Concomitant]
  10. OMEPRAZOLE (OMEPRAZOLE) (CAPSULES)? [Concomitant]
  11. POTASSIUM CHLORIDE (POTASSIUM CHLORIDE) (UNKNOWN)? [Concomitant]
  12. SINGULAIR (MONTELUKAST) (TABLETS) [Concomitant]
  13. TAMSULOSIN HCL (TAMSULOSIN HYDROCHLORIDE) (SUSTAINED-RELEASE CAPSULE) [Concomitant]
  14. TRIAMTERENE/HYDROCHLOROTHIAZIDE (DYAZIDE) (CAPSULES) [Concomitant]
  15. VITAMIN C (ASCORBIC ACID) (CHEWABLE TABLET) [Concomitant]
  16. DARBOPOIETIN (ALL OTHER THERAPEUTIC PRODUCTS) (UNKNOWN) [Concomitant]
  17. ZOLENDRONIC ACID (ALL OTHER THERAPEUTIC PRODUCTS) (UNKNOWN) [Concomitant]
  18. LOVENOX (HEPARIN-FRACTION, SODIUM SALT) (UNKNOWN) [Concomitant]
  19. POTASSIUM (POTASSIUM) (UNKNOWN) [Concomitant]
  20. VALACYCLOVIR HCL (VALACICLOVIR HYDROCHLORIDE) (500 MILLIGRAM, TABLETS)? [Concomitant]

REACTIONS (4)
  - Pancytopenia [None]
  - Platelet count decreased [None]
  - Plasma cell myeloma [None]
  - Rash [None]
